FAERS Safety Report 8221520-8 (Version None)
Quarter: 2012Q1

REPORT INFORMATION
  Report Type: 
  Country: None (occurrence: None)
  Receive Date: 20120316
  Receipt Date: 20120301
  Transmission Date: 20120608
  Serious: Yes (Hospitalization, Other)
  Sender: FDA-Public Use
  Company Number: JPI-P-016103

PATIENT
  Age: 53 Year
  Sex: Male
  Weight: 129.2752 kg

DRUGS (11)
  1. MELOXICAM [Concomitant]
  2. ZIPRASIDONE HCL [Suspect]
     Indication: HALLUCINATION, AUDITORY
     Dates: start: 20110401, end: 20110727
  3. OXYCODONE HCL [Concomitant]
  4. FUROSEMIDE [Concomitant]
  5. POTASSIUM CHLORIDE [Concomitant]
  6. METOLAZONE [Concomitant]
  7. PROMETHAZINE [Concomitant]
  8. XYREM [Suspect]
     Indication: CATAPLEXY
     Dosage: (2 IN 1 D),ORAL ; (2 IN 1 D),ORAL ; 9 GM (4.5 GM,2 IN 1 D),ORAL
     Route: 048
     Dates: start: 20061228
  9. XYREM [Suspect]
     Indication: CATAPLEXY
     Dosage: (2 IN 1 D),ORAL ; (2 IN 1 D),ORAL ; 9 GM (4.5 GM,2 IN 1 D),ORAL
     Route: 048
     Dates: start: 20101201
  10. ASPIRIN [Concomitant]
  11. TESTOSTERONE [Concomitant]

REACTIONS (9)
  - HALLUCINATION, AUDITORY [None]
  - SOMNOLENCE [None]
  - INTERVERTEBRAL DISC COMPRESSION [None]
  - POSTOPERATIVE WOUND INFECTION [None]
  - POST PROCEDURAL COMPLICATION [None]
  - INTERVERTEBRAL DISC PROTRUSION [None]
  - SLEEP DISORDER [None]
  - BIPOLAR DISORDER [None]
  - WEIGHT ABNORMAL [None]
